FAERS Safety Report 6563224-3 (Version None)
Quarter: 2010Q1

REPORT INFORMATION
  Report Type: 
  Country: None (occurrence: None)
  Receive Date: 20100130
  Receipt Date: 20091208
  Transmission Date: 20100710
  Serious: No
  Sender: FDA-Public Use
  Company Number: US-ABBOTT-09P-163-0613177-00

PATIENT
  Sex: Female

DRUGS (5)
  1. HUMIRA [Suspect]
     Indication: PSORIATIC ARTHROPATHY
     Route: 058
     Dates: start: 20080101, end: 20090801
  2. HUMIRA [Suspect]
     Indication: PSORIASIS
     Route: 058
     Dates: start: 20091124
  3. DICLOFENAC [Concomitant]
     Indication: PSORIATIC ARTHROPATHY
  4. MOTRIN [Concomitant]
     Indication: PSORIATIC ARTHROPATHY
  5. CREAMS [Concomitant]
     Indication: PSORIASIS
     Dosage: UNKNOWN
     Route: 061

REACTIONS (4)
  - DYSSTASIA [None]
  - GAIT DISTURBANCE [None]
  - LIGAMENT SPRAIN [None]
  - MUSCLE RUPTURE [None]
